FAERS Safety Report 9801204 (Version 1)
Quarter: 2014Q1

REPORT INFORMATION
  Report Type: Spontaneous
  Country: FR (occurrence: FR)
  Receive Date: 20140107
  Receipt Date: 20140107
  Transmission Date: 20141002
  Serious: Yes (Life-Threatening)
  Sender: FDA-Public Use
  Company Number: FR-PFIZER INC-2014001713

PATIENT
  Age: 85 Year
  Sex: Female

DRUGS (6)
  1. ALDACTONE [Suspect]
     Dosage: 12.5 MG, DAILY
     Route: 048
  2. PREVISCAN [Suspect]
     Indication: ATRIAL FIBRILLATION
     Dosage: 0.5 TABLET FOR 2 DAYS ALTERNATING WITH 0.75 TABLET FOR 1 DAY
     Route: 048
  3. EBIXA [Concomitant]
     Dosage: 20 MG, DAILY
     Route: 048
  4. BISOCE [Concomitant]
     Dosage: 5 MG, DAILY
     Route: 048
  5. LASILIX FAIBLE [Concomitant]
     Dosage: 20 MG, DAILY
     Route: 048
  6. IMOVANE [Concomitant]
     Dosage: 1 DF, DAILY
     Route: 048

REACTIONS (3)
  - Melaena [Unknown]
  - Haematemesis [Unknown]
  - Circulatory collapse [Unknown]
